FAERS Safety Report 24655423 (Version 1)
Quarter: 2024Q4

REPORT INFORMATION
  Report Type: Spontaneous
  Country: MT (occurrence: MT)
  Receive Date: 20241123
  Receipt Date: 20241123
  Transmission Date: 20250114
  Serious: Yes (Hospitalization)
  Sender: NOVITIUM PHARMA
  Company Number: MT-NOVITIUMPHARMA-2024MTNVP02624

PATIENT
  Sex: Male

DRUGS (3)
  1. RISPERIDONE [Suspect]
     Active Substance: RISPERIDONE
     Indication: Shared psychotic disorder
  2. HALOPERIDOL [Concomitant]
     Active Substance: HALOPERIDOL
     Indication: Shared psychotic disorder
     Dosage: DAILY
     Route: 030
  3. LORAZEPAM [Concomitant]
     Active Substance: LORAZEPAM
     Indication: Shared psychotic disorder

REACTIONS (2)
  - Trismus [Unknown]
  - Musculoskeletal stiffness [Unknown]
